FAERS Safety Report 4393053-0 (Version None)
Quarter: 2004Q3

REPORT INFORMATION
  Report Type: 
  Country: None (occurrence: None)
  Receive Date: 20040708
  Receipt Date: 20040630
  Transmission Date: 20050211
  Serious: Yes (Hospitalization)
  Sender: FDA-Public Use
  Company Number: NO-ROCHE-372577

PATIENT
  Age: 37 Year
  Sex: Female

DRUGS (10)
  1. CELLCEPT [Suspect]
     Route: 048
     Dates: start: 20031215, end: 20040415
  2. PROGRAF [Concomitant]
  3. ARANESP [Concomitant]
  4. ROCALTROL [Concomitant]
     Route: 048
  5. ADALAT OROS [Concomitant]
     Route: 048
  6. HUMALOG [Concomitant]
  7. INSULIN [Concomitant]
  8. CISORDINOL [Concomitant]
  9. FUROSEMIDE [Concomitant]
  10. AKINETON [Concomitant]

REACTIONS (1)
  - APLASIA PURE RED CELL [None]
